FAERS Safety Report 14747496 (Version 1)
Quarter: 2018Q2

REPORT INFORMATION
  Report Type: Spontaneous
  Country: US (occurrence: US)
  Receive Date: 20180411
  Receipt Date: 20180411
  Transmission Date: 20180711
  Serious: No
  Sender: FDA-Public Use
  Company Number: US-SHIRE-US201813202

PATIENT

DRUGS (1)
  1. LIALDA [Suspect]
     Active Substance: MESALAMINE
     Indication: PRODUCT USED FOR UNKNOWN INDICATION
     Dosage: 1.2 G, 4X/DAY:QID
     Route: 065
     Dates: start: 20141001

REACTIONS (5)
  - Flatulence [Unknown]
  - Myalgia [Unknown]
  - Headache [Unknown]
  - Presyncope [Unknown]
  - Arthralgia [Unknown]

NARRATIVE: CASE EVENT DATE: 20180330
